FAERS Safety Report 15600820 (Version 2)
Quarter: 2018Q4

REPORT INFORMATION
  Report Type: Spontaneous
  Country: DE (occurrence: DE)
  Receive Date: 20181109
  Receipt Date: 20181120
  Transmission Date: 20190205
  Serious: Yes (Hospitalization)
  Sender: FDA-Public Use
  Company Number: DE-ROCHE-2211203

PATIENT
  Sex: Female

DRUGS (1)
  1. OCREVUS [Suspect]
     Active Substance: OCRELIZUMAB
     Indication: PRODUCT USED FOR UNKNOWN INDICATION
     Dosage: SCHEDULED NEXT DOSE ON 08/NOV/2018 (300 MG).
     Route: 042
     Dates: start: 20181008, end: 20181008

REACTIONS (2)
  - Femoral neck fracture [Unknown]
  - Lymphopenia [Unknown]
